FAERS Safety Report 8805917 (Version 1)
Quarter: 2012Q4

REPORT INFORMATION
  Report Type: 
  Country: US (occurrence: None)
  Receive Date: 20120919
  Receipt Date: 20120919
  Transmission Date: 20130627
  Serious: Yes (Hospitalization)
  Sender: FDA-Public Use
  Company Number: None

PATIENT
  Sex: Male
  Weight: 62.7 kg

DRUGS (1)
  1. CISPLATIN [Suspect]

REACTIONS (6)
  - Hyponatraemia [None]
  - Nausea [None]
  - Hypokalaemia [None]
  - Dehydration [None]
  - Malnutrition [None]
  - Pain [None]
